FAERS Safety Report 7842250-8 (Version None)
Quarter: 2011Q4

REPORT INFORMATION
  Report Type: 
  Country: None (occurrence: None)
  Receive Date: 20111025
  Receipt Date: 20111021
  Transmission Date: 20120403
  Serious: Yes (Death, Hospitalization)
  Sender: FDA-Public Use
  Company Number: GB-PFIZER INC-2006148370

PATIENT
  Age: 71 Year
  Sex: Male

DRUGS (11)
  1. ACETAMINOPHEN AND CODEINE PHOSPHATE [Concomitant]
     Dosage: UNK
     Route: 048
     Dates: start: 20050615
  2. ENOXAPARIN SODIUM [Concomitant]
     Route: 058
     Dates: start: 20060925
  3. LOPERAMIDE HCL [Concomitant]
     Dosage: UNK
     Route: 048
     Dates: start: 20050615
  4. DEXAMETHASONE [Concomitant]
     Route: 048
     Dates: start: 20060530
  5. OMEPRAZOLE [Concomitant]
     Dosage: UNK
     Route: 048
     Dates: start: 20050615
  6. AMLODIPINE [Concomitant]
     Dosage: UNK
     Route: 048
     Dates: start: 20050615
  7. SUNITINIB MALATE [Suspect]
     Indication: GASTROINTESTINAL STROMAL TUMOUR
     Dosage: 37.5 MG, DAILY
     Route: 048
     Dates: start: 20060307, end: 20061120
  8. BENDROFLUAZIDE [Concomitant]
     Dosage: UNK
     Route: 048
     Dates: start: 20050615
  9. BISOPROLOL [Concomitant]
     Dosage: UNK
     Route: 048
     Dates: start: 20050615
  10. CYCLIZINE [Concomitant]
     Dosage: UNK
     Route: 048
     Dates: start: 20050615
  11. PERSANTIN [Concomitant]
     Dates: start: 20060101, end: 20060101

REACTIONS (2)
  - CELLULITIS [None]
  - CARDIAC ARREST [None]
